FAERS Safety Report 8466350 (Version 6)
Quarter: 2012Q4

REPORT INFORMATION
  Report Type: 
  Country: FI (occurrence: FI)
  Receive Date: 20120319
  Receipt Date: 20121127
  Transmission Date: 20130627
  Serious: Yes (Hospitalization, Other)
  Sender: FDA-Public Use
  Company Number: FI-AMGEN-FINSP2012016785

PATIENT
  Age: 46 Year
  Sex: Male
  Weight: 110 kg

DRUGS (9)
  1. NPLATE [Suspect]
     Indication: IDIOPATHIC THROMBOCYTOPENIC PURPURA
     Dosage: 10 mug, qwk
     Route: 058
     Dates: start: 20100105, end: 20120313
  2. PRIVIGEN                           /00025201/ [Concomitant]
     Indication: IDIOPATHIC THROMBOCYTOPENIC PURPURA
     Dosage: 40 g, qd
     Route: 042
     Dates: start: 20120302, end: 20120304
  3. PREDNISOLON                        /00016201/ [Concomitant]
     Indication: IDIOPATHIC THROMBOCYTOPENIC PURPURA
     Dosage: 20 mg, UNK
     Route: 048
     Dates: start: 20090901
  4. KLEXANE [Concomitant]
     Indication: THROMBOSIS PROPHYLAXIS
     Dosage: 100 mg/ml, UNK
     Route: 042
     Dates: end: 20120228
  5. SOMAC [Concomitant]
     Dosage: 40 mg, qd
     Route: 048
  6. ALENDRONAT [Concomitant]
     Dosage: 70 mg, qwk
     Route: 048
  7. GAMMA                              /01995701/ [Concomitant]
  8. RAMIPRIL ACTAVIS [Concomitant]
     Indication: HYPERTENSION
     Dosage: 5 mg, UNK
     Route: 048
  9. KALCIPOS-D [Concomitant]
     Route: 048

REACTIONS (10)
  - Gastrointestinal haemorrhage [Not Recovered/Not Resolved]
  - Haematuria [Not Recovered/Not Resolved]
  - Therapeutic response decreased [Not Recovered/Not Resolved]
  - Pulmonary embolism [Unknown]
  - Post procedural haemorrhage [Unknown]
  - Abdominal infection [Unknown]
  - Leukocytosis [Unknown]
  - Anaemia [Unknown]
  - Myeloproliferative disorder [Recovering/Resolving]
  - Osteosclerosis [Recovered/Resolved]
